FAERS Safety Report 6304609-X (Version None)
Quarter: 2009Q3

REPORT INFORMATION
  Report Type: 
  Country: None (occurrence: None)
  Receive Date: 20090811
  Receipt Date: 20090731
  Transmission Date: 20100115
  Serious: Yes (Hospitalization)
  Sender: FDA-Public Use
  Company Number: US-JNJFOC-20090800533

PATIENT
  Sex: Female

DRUGS (4)
  1. ULTRAM [Suspect]
     Indication: PAIN
     Route: 065
  2. IBUPROFEN [Concomitant]
  3. ALEVE [Concomitant]
  4. CELEBREX [Concomitant]
     Indication: PAIN

REACTIONS (3)
  - DIZZINESS [None]
  - DYSTONIA [None]
  - TREMOR [None]
